FAERS Safety Report 8284062-X (Version None)
Quarter: 2012Q2

REPORT INFORMATION
  Report Type: 
  Country: None (occurrence: None)
  Receive Date: 20120413
  Receipt Date: 20110315
  Transmission Date: 20120825
  Serious: Yes (Other)
  Sender: FDA-Public Use
  Company Number: US-ASTRAZENECA-2011SE14526

PATIENT
  Sex: Male

DRUGS (4)
  1. NEXIUM [Suspect]
     Route: 048
  2. PREVACID [Suspect]
     Route: 048
  3. ACIPHEX [Suspect]
     Route: 065
  4. PANTOPRAZOLE [Concomitant]

REACTIONS (3)
  - MALAISE [None]
  - WEIGHT DECREASED [None]
  - DRUG INEFFECTIVE [None]
